FAERS Safety Report 9620923 (Version 1)
Quarter: 2013Q4

REPORT INFORMATION
  Report Type: Spontaneous
  Country: FR (occurrence: FR)
  Receive Date: 20131015
  Receipt Date: 20131015
  Transmission Date: 20140711
  Serious: Yes (Death, Disabling)
  Sender: FDA-Public Use
  Company Number: FR-JNJFOC-20131004641

PATIENT
  Age: 60 Year
  Sex: Male

DRUGS (3)
  1. RISPERDAL CONSTA LP [Suspect]
     Indication: PRODUCT USED FOR UNKNOWN INDICATION
     Dosage: INITIATED 15 DAYS BEFORE HIS DEATH
     Route: 030
  2. RISPERDAL CONSTA LP [Suspect]
     Indication: PRODUCT USED FOR UNKNOWN INDICATION
     Dosage: AT LEAST 2 YEARS
     Route: 030
  3. SEROPLEX [Concomitant]
     Route: 065

REACTIONS (2)
  - Completed suicide [Fatal]
  - Dyskinesia [Unknown]
